FAERS Safety Report 5096370-4 (Version None)
Quarter: 2006Q3

REPORT INFORMATION
  Report Type: 
  Country: None (occurrence: None)
  Receive Date: 20060830
  Receipt Date: 20060814
  Transmission Date: 20061208
  Serious: Yes (Hospitalization)
  Sender: FDA-Public Use
  Company Number: 2006RR-03443

PATIENT
  Age: 85 Year
  Sex: Female

DRUGS (17)
  1. ASPIRIN [Suspect]
     Dosage: 75 MG, QD, ORAL
     Route: 048
     Dates: start: 20010101, end: 20050110
  2. CITALOPRAM TABLET 10MG(CITALOPRAM) TABLET, 10MG [Suspect]
     Indication: DEPRESSION
     Dosage: 10 MG, QD, ORAL
     Route: 048
     Dates: start: 20041223
  3. TINZAPARIN [Concomitant]
  4. ADCAL-D3 [Concomitant]
  5. ALENDRONATE SODIUM [Concomitant]
  6. BENDROFLUAZIDE (BENDROFLUMETHIAZIDE) [Concomitant]
  7. BETAXOLOL [Concomitant]
  8. BRIMONIDINE TARTRATE [Concomitant]
  9. FERROUS SULFATE TAB [Concomitant]
  10. LATANOPROST [Concomitant]
  11. PARACETAMOL [Concomitant]
  12. PERINDOPRIL ERBUMINE [Concomitant]
  13. QUININE SULFATE [Concomitant]
  14. SENNA [Concomitant]
  15. SIMVASTATIN [Concomitant]
  16. SODIUM DOCUSATE [Concomitant]
  17. TRAMADOL HCL [Concomitant]

REACTIONS (2)
  - DUODENAL ULCER [None]
  - GASTROINTESTINAL HAEMORRHAGE [None]
